FAERS Safety Report 13486168 (Version 1)
Quarter: 2017Q2

REPORT INFORMATION
  Report Type: Report from Study
  Country: US (occurrence: US)
  Receive Date: 20170426
  Receipt Date: 20170426
  Transmission Date: 20170830
  Serious: Yes (Life-Threatening, Hospitalization, Disabling)
  Sender: FDA-Public Use
  Company Number: US-ROCHE-1638197

PATIENT
  Age: 68 Year
  Sex: Female
  Weight: 81.6 kg

DRUGS (38)
  1. AMPICILLIN [Concomitant]
     Active Substance: AMPICILLIN
     Route: 065
     Dates: start: 20150916, end: 20150916
  2. HYDRALAZINE [Concomitant]
     Active Substance: HYDRALAZINE HYDROCHLORIDE
     Indication: HYPERTENSION
     Route: 065
     Dates: start: 20150917
  3. MAGNESIUM SULFATE. [Concomitant]
     Active Substance: MAGNESIUM SULFATE
     Route: 065
     Dates: start: 20150917
  4. METFORMIN [Concomitant]
     Active Substance: METFORMIN HYDROCHLORIDE
     Route: 065
     Dates: start: 20150821
  5. NORCO [Concomitant]
     Active Substance: ACETAMINOPHEN\HYDROCODONE BITARTRATE
     Route: 065
     Dates: start: 20150123
  6. MAGNESIUM OXIDE. [Concomitant]
     Active Substance: MAGNESIUM OXIDE
     Route: 065
  7. HUMALOG [Concomitant]
     Active Substance: INSULIN LISPRO
     Dosage: 10 UNITS
     Route: 065
     Dates: start: 20150608
  8. KEPPRA [Concomitant]
     Active Substance: LEVETIRACETAM
     Indication: SEIZURE
     Route: 065
     Dates: start: 20150917
  9. METOPROLOL TARTRATE. [Concomitant]
     Active Substance: METOPROLOL TARTRATE
     Indication: HYPERTENSION
     Route: 065
     Dates: start: 20150917
  10. PANTOPRAZOLE [Concomitant]
     Active Substance: PANTOPRAZOLE
     Indication: GASTROOESOPHAGEAL REFLUX DISEASE
     Route: 065
     Dates: start: 20130208
  11. ROCEPHIN [Concomitant]
     Active Substance: CEFTRIAXONE SODIUM
     Route: 065
     Dates: start: 20150916, end: 20150916
  12. ASPIRIN. [Concomitant]
     Active Substance: ASPIRIN
     Route: 065
     Dates: start: 20130522
  13. FENTANYL. [Concomitant]
     Active Substance: FENTANYL
     Indication: SEDATION
     Route: 065
     Dates: start: 20150917
  14. COZAAR [Concomitant]
     Active Substance: LOSARTAN POTASSIUM
     Route: 065
     Dates: start: 20150821
  15. LOPRESSOR [Concomitant]
     Active Substance: METOPROLOL TARTRATE
     Route: 065
     Dates: start: 20130124, end: 20150915
  16. NORTRIPTYLINE [Concomitant]
     Active Substance: NORTRIPTYLINE
     Dosage: EVERY NIGHT AT BEDTIME
     Route: 065
     Dates: start: 20130124, end: 20150915
  17. MELATONIN [Concomitant]
     Active Substance: MELATONIN
     Route: 065
  18. PLACEBO [Suspect]
     Active Substance: UNSPECIFIED INGREDIENT
     Indication: CEREBROVASCULAR ACCIDENT
     Dosage: LAST DOSE: 15/SEP/2015
     Route: 048
     Dates: start: 20150915
  19. ATORVASTATIN [Concomitant]
     Active Substance: ATORVASTATIN
     Route: 065
     Dates: start: 20150821
  20. FENOFIBRATE. [Concomitant]
     Active Substance: FENOFIBRATE
     Indication: HYPERLIPIDAEMIA
     Route: 065
     Dates: start: 20130124
  21. LORAZEPAM. [Concomitant]
     Active Substance: LORAZEPAM
     Indication: ANXIETY
     Route: 065
     Dates: start: 20150916, end: 20150916
  22. GLIPIZIDE. [Concomitant]
     Active Substance: GLIPIZIDE
     Route: 065
     Dates: start: 20130124
  23. BENADRYL [Concomitant]
     Active Substance: DIPHENHYDRAMINE HYDROCHLORIDE
     Route: 065
  24. ALTEPLASE [Suspect]
     Active Substance: ALTEPLASE
     Indication: CEREBROVASCULAR ACCIDENT
     Dosage: LAST DOSE: 15/SEP/2015
     Route: 042
     Dates: start: 20150915
  25. ACYCLOVIR. [Concomitant]
     Active Substance: ACYCLOVIR
     Indication: HERPES SIMPLEX
     Route: 065
     Dates: start: 20150916, end: 20150916
  26. LISPRO INSULIN [Concomitant]
     Active Substance: INSULIN LISPRO
     Indication: TYPE 2 DIABETES MELLITUS
     Dosage: 0-12 UNITS
     Route: 065
     Dates: start: 20150208
  27. NICARDIPINE [Concomitant]
     Active Substance: NICARDIPINE
     Route: 065
     Dates: start: 20150915
  28. POTASSIUM CHLORIDE. [Concomitant]
     Active Substance: POTASSIUM CHLORIDE
     Route: 065
     Dates: start: 20150916, end: 20150916
  29. VANCOMYCIN [Concomitant]
     Active Substance: VANCOMYCIN
     Dosage: EMPIRIC ANTIBIOTIC
     Route: 065
     Dates: start: 20150916, end: 20150916
  30. CHLORTHALIDONE. [Concomitant]
     Active Substance: CHLORTHALIDONE
     Route: 065
     Dates: start: 20150223, end: 20150915
  31. ACETAMINOPHEN. [Concomitant]
     Active Substance: ACETAMINOPHEN
     Indication: PYREXIA
     Route: 065
     Dates: start: 20150916
  32. ACETAMINOPHEN. [Concomitant]
     Active Substance: ACETAMINOPHEN
     Indication: PAIN
  33. ATORVASTATIN [Concomitant]
     Active Substance: ATORVASTATIN
     Indication: HYPERLIPIDAEMIA
     Route: 065
     Dates: start: 20130124
  34. LABETALOL [Concomitant]
     Active Substance: LABETALOL\LABETALOL HYDROCHLORIDE
     Indication: HYPERTENSION
     Route: 065
     Dates: start: 20150917
  35. LOSARTAN. [Concomitant]
     Active Substance: LOSARTAN
     Indication: HYPERTENSION
     Route: 065
     Dates: start: 20150917
  36. BACLOFEN. [Concomitant]
     Active Substance: BACLOFEN
     Route: 065
     Dates: start: 20150623
  37. CHOLECALCIFEROL [Concomitant]
     Active Substance: CHOLECALCIFEROL
     Route: 065
  38. PRILOSEC [Concomitant]
     Active Substance: OMEPRAZOLE MAGNESIUM
     Route: 065
     Dates: start: 20130124

REACTIONS (2)
  - Haemorrhagic transformation stroke [Recovered/Resolved]
  - Haemorrhage intracranial [Recovered/Resolved]

NARRATIVE: CASE EVENT DATE: 20150916
